FAERS Safety Report 14037626 (Version 1)
Quarter: 2017Q4

REPORT INFORMATION
  Report Type: Spontaneous
  Country: US (occurrence: US)
  Receive Date: 20171003
  Receipt Date: 20171003
  Transmission Date: 20180321
  Serious: Yes (Disabling)
  Sender: FDA-Public Use
  Company Number: None

PATIENT
  Age: 46 Year
  Sex: Male
  Weight: 101.25 kg

DRUGS (1)
  1. NEUPOGEN [Suspect]
     Active Substance: FILGRASTIM
     Indication: STEM CELL DONOR
     Route: 030
     Dates: start: 20141101, end: 20141107

REACTIONS (1)
  - Cardiolipin antibody positive [None]

NARRATIVE: CASE EVENT DATE: 20150515
